FAERS Safety Report 4415203-X (Version None)
Quarter: 2004Q3

REPORT INFORMATION
  Report Type: 
  Country: None (occurrence: None)
  Receive Date: 20040802
  Receipt Date: 20040728
  Transmission Date: 20050211
  Serious: Yes (Death)
  Sender: FDA-Public Use
  Company Number: 04-07-1078

PATIENT
  Age: 43 Year
  Sex: Female

DRUGS (1)
  1. CLOZAPINE [Suspect]
     Indication: SCHIZOAFFECTIVE DISORDER
     Dosage: 150MG QD ORAL
     Route: 048
     Dates: start: 20010201, end: 20040701

REACTIONS (3)
  - BRAIN CANCER METASTATIC [None]
  - HEPATIC CANCER METASTATIC [None]
  - LUNG CANCER METASTATIC [None]
